FAERS Safety Report 11684529 (Version 2)
Quarter: 2015Q4

REPORT INFORMATION
  Report Type: Report from Study
  Country: CA (occurrence: CA)
  Receive Date: 20151029
  Receipt Date: 20151201
  Transmission Date: 20160304
  Serious: Yes (Life-Threatening, Other)
  Sender: FDA-Public Use
  Company Number: CA-ABBVIE-15P-028-1487471-00

PATIENT
  Age: 64 Year
  Sex: Male
  Weight: 106 kg

DRUGS (2)
  1. NADOLOL. [Concomitant]
     Active Substance: NADOLOL
     Indication: VARICOSE VEIN
     Route: 048
  2. HOLKIRA PAK [Suspect]
     Active Substance: DASABUVIR\OMBITASVIR\PARITAPREVIR\RITONAVIR
     Indication: HEPATITIS C
     Route: 048
     Dates: start: 2015

REACTIONS (1)
  - Hepatic cancer [Not Recovered/Not Resolved]

NARRATIVE: CASE EVENT DATE: 20151006
